FAERS Safety Report 6907015-X (Version None)
Quarter: 2010Q3

REPORT INFORMATION
  Report Type: 
  Country: None (occurrence: None)
  Receive Date: 20100804
  Receipt Date: 20070828
  Transmission Date: 20110219
  Serious: No
  Sender: FDA-Public Use
  Company Number: US-PFIZER INC-2007072184

PATIENT
  Sex: Female
  Weight: 60 kg

DRUGS (2)
  1. NARDIL [Suspect]
     Indication: MENTAL DISORDER
     Dates: start: 20010101
  2. NARDIL [Suspect]
     Indication: ANXIETY

REACTIONS (2)
  - INTESTINAL FUNCTIONAL DISORDER [None]
  - MUSCLE TWITCHING [None]
